FAERS Safety Report 5499926-X (Version None)
Quarter: 2007Q4

REPORT INFORMATION
  Report Type: 
  Country: None (occurrence: None)
  Receive Date: 20071026
  Receipt Date: 20071016
  Transmission Date: 20080405
  Serious: Yes (Other)
  Sender: FDA-Public Use
  Company Number: NL-PFIZER INC-2007087754

PATIENT
  Sex: Male
  Weight: 93 kg

DRUGS (3)
  1. CHAMPIX [Suspect]
     Indication: SMOKING CESSATION THERAPY
     Route: 048
  2. TIMOPTIC [Concomitant]
     Route: 047
  3. ATACAND [Concomitant]

REACTIONS (4)
  - FATIGUE [None]
  - HYPERSOMNIA [None]
  - MIGRAINE [None]
  - TUNNEL VISION [None]
